FAERS Safety Report 6314547-4 (Version None)
Quarter: 2009Q3

REPORT INFORMATION
  Report Type: 
  Country: None (occurrence: None)
  Receive Date: 20090819
  Receipt Date: 20090814
  Transmission Date: 20100115
  Serious: Yes (Other)
  Sender: FDA-Public Use
  Company Number: US-RB-019419-09

PATIENT
  Age: 23 Year
  Sex: Female

DRUGS (7)
  1. SUBUTEX [Suspect]
     Indication: DRUG DEPENDENCE
     Route: 060
     Dates: start: 20090524, end: 20090801
  2. SUBUTEX [Suspect]
     Route: 060
     Dates: start: 20090801
  3. PROMETHAZINE [Concomitant]
     Indication: NAUSEA
     Dosage: DOSING INFORMATION UNKNOWN
     Route: 065
  4. SENNA [Concomitant]
     Indication: CONSTIPATION
     Dosage: DOSING INFORMATION UNKNOWN
     Route: 065
  5. REMERON [Concomitant]
     Indication: SLEEP DISORDER
     Dosage: DOSING INFORMATION UNKNOWN
     Route: 065
  6. CELEXA [Concomitant]
     Indication: DEPRESSION
     Dosage: DOSING INFORMATION UNKNOWN
     Route: 065
  7. VITAMIN TAB [Concomitant]
     Indication: PREGNANCY
     Dosage: DOSING INFORMATION UNKNOWN.
     Route: 065

REACTIONS (7)
  - ABDOMINAL PAIN [None]
  - DRUG EXPOSURE DURING PREGNANCY [None]
  - DRUG SCREEN POSITIVE [None]
  - HAEMATEMESIS [None]
  - PAIN [None]
  - PREMATURE SEPARATION OF PLACENTA [None]
  - STILLBIRTH [None]
